FAERS Safety Report 9676155 (Version 1)
Quarter: 2013Q4

REPORT INFORMATION
  Report Type: Spontaneous
  Country: US (occurrence: None)
  Receive Date: 20131105
  Receipt Date: 20131105
  Transmission Date: 20140711
  Serious: Yes (Other)
  Sender: FDA-Public Use
  Company Number: ACO_38928_2013

PATIENT
  Sex: Female

DRUGS (6)
  1. AMPYRA (DALFAMPRIDINE) TABLET, 10MG [Suspect]
     Indication: MULTIPLE SCLEROSIS
     Route: 048
     Dates: start: 20121206, end: 20130807
  2. LUNESTA (ESZOPIDONE) [Concomitant]
  3. BACLOFEN (BACLOFEN) [Concomitant]
  4. LEXAPRO (ESCITALOPRAM OXALATE) [Concomitant]
  5. BONIVA (IBANDRONATE SODIUM) [Concomitant]
  6. BISPHOSPHONATES [Concomitant]

REACTIONS (1)
  - Dyspnoea [None]
